FAERS Safety Report 4964627-0 (Version None)
Quarter: 2006Q2

REPORT INFORMATION
  Report Type: 
  Country: None (occurrence: None)
  Receive Date: 20060406
  Receipt Date: 20051025
  Transmission Date: 20061013
  Serious: Yes (Hospitalization, Disabling)
  Sender: FDA-Public Use
  Company Number: US-MERCK-0510USA09275

PATIENT
  Age: 69 Year
  Sex: Female
  Weight: 57 kg

DRUGS (5)
  1. VIOXX [Suspect]
     Indication: PAIN
     Route: 048
     Dates: start: 19991001, end: 20020601
  2. VIOXX [Suspect]
     Route: 048
     Dates: start: 19991001, end: 20020601
  3. VIOXX [Suspect]
     Indication: ARTHRITIS
     Route: 048
     Dates: start: 19991001, end: 20020601
  4. VIOXX [Suspect]
     Route: 048
     Dates: start: 19991001, end: 20020601
  5. TYLENOL (CAPLET) [Concomitant]
     Route: 065

REACTIONS (9)
  - ACUTE MYOCARDIAL INFARCTION [None]
  - ANGINA UNSTABLE [None]
  - BLOOD PRESSURE INCREASED [None]
  - CEREBROVASCULAR ACCIDENT [None]
  - CHEST PAIN [None]
  - DIARRHOEA [None]
  - HEART RATE INCREASED [None]
  - HYPERTENSION [None]
  - PULMONARY EMBOLISM [None]
